FAERS Safety Report 7972863-4 (Version None)
Quarter: 2011Q4

REPORT INFORMATION
  Report Type: 
  Country: None (occurrence: None)
  Receive Date: 20111213
  Receipt Date: 20111128
  Transmission Date: 20120403
  Serious: Yes (Death)
  Sender: FDA-Public Use
  Company Number: CN-ROCHE-1017400

PATIENT
  Sex: Male

DRUGS (9)
  1. ADEFOVIR DIPIVOXIL KIT [Concomitant]
     Indication: PROPHYLAXIS
  2. PROSTAGLANDIN E [Concomitant]
     Indication: PROPHYLAXIS
  3. IMMUNOGLOBULIN ANTI-HEPATITIS B [Concomitant]
     Indication: PROPHYLAXIS
  4. MYCOPHENOLATE MOFETIL (CELLCEPT) [Suspect]
     Indication: ORGAN TRANSPLANT
     Route: 048
  5. TACROLIMUS [Concomitant]
     Indication: ORGAN TRANSPLANT
  6. BASILIXIMAB [Concomitant]
  7. BASILIXIMAB [Concomitant]
     Indication: ORGAN TRANSPLANT
  8. DALTEPARIN SODIUM [Concomitant]
     Indication: PROPHYLAXIS
  9. METHYLPREDNISOLONE [Concomitant]
     Indication: ORGAN TRANSPLANT

REACTIONS (2)
  - MULTI-ORGAN FAILURE [None]
  - INFECTION [None]
